FAERS Safety Report 6349589-6 (Version None)
Quarter: 2009Q3

REPORT INFORMATION
  Report Type: 
  Country: None (occurrence: None)
  Receive Date: 20090911
  Receipt Date: 20090831
  Transmission Date: 20100115
  Serious: Yes (Hospitalization, Other)
  Sender: FDA-Public Use
  Company Number: PHHY2009CL36772

PATIENT
  Age: 52 Year
  Sex: Male

DRUGS (2)
  1. TAREG D [Suspect]
     Indication: HYPERTENSION
     Dosage: 2 DF, QD
     Route: 048
  2. ASPIRIN [Concomitant]

REACTIONS (1)
  - CEREBROVASCULAR ACCIDENT [None]
